FAERS Safety Report 6949040-9 (Version None)
Quarter: 2010Q3

REPORT INFORMATION
  Report Type: 
  Country: None (occurrence: None)
  Receive Date: 20100828
  Receipt Date: 20091204
  Transmission Date: 20110219
  Serious: No
  Sender: FDA-Public Use
  Company Number: US-ABBOTT-09P-163-0613134-00

PATIENT
  Sex: Male
  Weight: 93.07 kg

DRUGS (3)
  1. NIASPAN [Suspect]
     Indication: BLOOD TRIGLYCERIDES INCREASED
     Dosage: 500MG AT BEDTIME
     Route: 048
     Dates: start: 20091001, end: 20091101
  2. ASPIRIN [Concomitant]
     Indication: PRODUCT USED FOR UNKNOWN INDICATION
     Dosage: 81MG EVERY MORNING
     Route: 048
  3. BLOOD PRESSURE MEDICATION [Concomitant]
     Indication: HYPERTENSION

REACTIONS (3)
  - FLUSHING [None]
  - RASH [None]
  - SKIN BURNING SENSATION [None]
